FAERS Safety Report 5692467-6 (Version None)
Quarter: 2008Q2

REPORT INFORMATION
  Report Type: 
  Country: None (occurrence: None)
  Receive Date: 20080402
  Receipt Date: 20070920
  Transmission Date: 20081010
  Serious: Yes (Other)
  Sender: FDA-Public Use
  Company Number: US-BAYER-US-2007-035522

PATIENT
  Age: 80 Year
  Sex: Male
  Weight: 63 kg

DRUGS (6)
  1. LEUKINE [Suspect]
     Indication: NON-HODGKIN'S LYMPHOMA
     Route: 058
     Dates: start: 20070920
  2. NITROGLYCERIN [Concomitant]
  3. LISINOPRIL [Concomitant]
  4. DARVOCET [Concomitant]
  5. ACETYLSALICYLIC ACID SRT [Concomitant]
  6. METHIMAZOLE [Concomitant]

REACTIONS (4)
  - DIZZINESS [None]
  - DYSARTHRIA [None]
  - HYPOTENSION [None]
  - VISION BLURRED [None]
